FAERS Safety Report 9773431 (Version 2)
Quarter: 2014Q1

REPORT INFORMATION
  Report Type: Report from Study
  Country: BR (occurrence: BR)
  Receive Date: 20131219
  Receipt Date: 20140116
  Transmission Date: 20141002
  Serious: Yes (Death, Hospitalization, Other)
  Sender: FDA-Public Use
  Company Number: PHHY2013BR148659

PATIENT
  Age: 37 Year
  Sex: Female
  Weight: 80 kg

DRUGS (2)
  1. RASILEZ [Suspect]
     Indication: HYPERTENSION
     Dosage: 300 MG, DAILY
     Route: 048
     Dates: end: 201201
  2. EROS [Concomitant]
     Indication: BLOOD PRESSURE ABNORMAL
     Dosage: UNK UKN, UNK
     Dates: end: 201211

REACTIONS (6)
  - Breast cancer [Fatal]
  - Lung cancer metastatic [Fatal]
  - Hepatic cancer metastatic [Fatal]
  - Bone neoplasm [Fatal]
  - Malignant neoplasm progression [Unknown]
  - Renal failure [Fatal]
